FAERS Safety Report 9155263 (Version 2)
Quarter: 2013Q2

REPORT INFORMATION
  Report Type: Spontaneous
  Country: AU (occurrence: AU)
  Receive Date: 20130311
  Receipt Date: 20130401
  Transmission Date: 20140414
  Serious: Yes (Other)
  Sender: FDA-Public Use
  Company Number: PHHY2013AU022957

PATIENT
  Age: 62 Year
  Sex: Female

DRUGS (5)
  1. GILENYA [Suspect]
     Indication: MULTIPLE SCLEROSIS
     Dosage: 0.5 MG, QD
     Route: 048
     Dates: start: 20111109, end: 20120425
  2. AZATHIOPRINE [Concomitant]
  3. CARBAMAZEPINE [Concomitant]
     Indication: CONVULSION
     Dosage: 200 MG, NOCTE
     Route: 048
     Dates: start: 1992
  4. CARBAMAZEPINE [Concomitant]
     Dosage: 100 MG, MANE
     Route: 048
     Dates: start: 1992
  5. DIAZEPAM [Concomitant]
     Indication: MUSCLE SPASTICITY
     Dosage: 0.25 MG, MANE
     Route: 048

REACTIONS (7)
  - Neuromyelitis optica [Unknown]
  - Ataxia [Unknown]
  - Central nervous system lesion [Recovering/Resolving]
  - Optic neuritis [Unknown]
  - Visual impairment [Unknown]
  - Visual acuity reduced [Unknown]
  - Balance disorder [Recovered/Resolved]
